FAERS Safety Report 14656113 (Version 2)
Quarter: 2018Q2

REPORT INFORMATION
  Report Type: Spontaneous
  Country: US (occurrence: US)
  Receive Date: 20180319
  Receipt Date: 20180413
  Transmission Date: 20180711
  Serious: No
  Sender: FDA-Public Use
  Company Number: US-PFIZER INC-2018112479

PATIENT
  Age: 51 Year
  Sex: Male

DRUGS (2)
  1. LYRICA [Interacting]
     Active Substance: PREGABALIN
     Dosage: UNK
  2. XELJANZ XR [Suspect]
     Active Substance: TOFACITINIB CITRATE
     Dosage: 11 MG, DAILY

REACTIONS (4)
  - Back pain [Unknown]
  - Acne [Unknown]
  - Drug interaction [Unknown]
  - Arthralgia [Unknown]
